FAERS Safety Report 5490923-7 (Version None)
Quarter: 2007Q4

REPORT INFORMATION
  Report Type: 
  Country: None (occurrence: None)
  Receive Date: 20071019
  Receipt Date: 20071011
  Transmission Date: 20080405
  Serious: Yes (Disabling)
  Sender: FDA-Public Use
  Company Number: US-ROCHE-515381

PATIENT
  Age: 57 Year
  Sex: Male
  Weight: 94.5 kg

DRUGS (12)
  1. PEG-INTERFERON ALFA 2A (RO 25-8310) [Suspect]
     Dosage: DOSAGE FORM: VIAL.
     Route: 058
     Dates: start: 20070507, end: 20070821
  2. RIBAVIRIN [Suspect]
     Dosage: 1200/1600 MG BLINDED THERAPY
     Route: 048
     Dates: start: 20070507, end: 20070904
  3. LAMICTAL [Suspect]
     Indication: DRUG USE FOR UNKNOWN INDICATION
     Route: 065
  4. CYMBALTA [Suspect]
     Indication: DRUG USE FOR UNKNOWN INDICATION
     Route: 065
  5. KEPPRA [Suspect]
     Indication: DRUG USE FOR UNKNOWN INDICATION
     Route: 065
  6. DYAZIDE [Suspect]
     Indication: DRUG USE FOR UNKNOWN INDICATION
     Route: 065
  7. UNSPECIFIED DRUG [Concomitant]
     Indication: ASTHMA
     Dosage: TRADE NAME: CPAP.
  8. SINGULAIR [Concomitant]
  9. ACIPHEX [Concomitant]
  10. ALBUTEROL [Concomitant]
  11. MULTIVITAMIN NOS [Concomitant]
  12. UNSPECIFIED DRUG [Concomitant]
     Dosage: NEBULIZER.

REACTIONS (1)
  - RETINAL DETACHMENT [None]
